FAERS Safety Report 8428463-5 (Version None)
Quarter: 2012Q2

REPORT INFORMATION
  Report Type: 
  Country: None (occurrence: None)
  Receive Date: 20120612
  Receipt Date: 20120607
  Transmission Date: 20120825
  Serious: No
  Sender: FDA-Public Use
  Company Number: US-PFIZER INC-2012138401

PATIENT
  Sex: Female
  Weight: 90.703 kg

DRUGS (2)
  1. RELPAX [Suspect]
     Indication: MIGRAINE
     Dosage: 40 MG, UNK
     Route: 048
  2. VERAPAMIL [Concomitant]
     Indication: MIGRAINE
     Dosage: UNK, 40 MG IN MORNING AND 80 MG AT NIGHT

REACTIONS (1)
  - DRUG INEFFECTIVE [None]
